FAERS Safety Report 11798534 (Version 1)
Quarter: 2015Q4

REPORT INFORMATION
  Report Type: Spontaneous
  Country: US (occurrence: US)
  Receive Date: 20151203
  Receipt Date: 20151203
  Transmission Date: 20160305
  Serious: No
  Sender: FDA-Public Use
  Company Number: US-REGENERON PHARMACEUTICALS, INC.-2015-11946

PATIENT
  Age: 86 Year
  Sex: Female
  Weight: 54.42 kg

DRUGS (7)
  1. LIPITOR [Concomitant]
     Active Substance: ATORVASTATIN CALCIUM
     Dosage: UNK
  2. EYLEA [Suspect]
     Active Substance: AFLIBERCEPT
     Indication: MACULAR DEGENERATION
     Dosage: UNK
     Route: 031
     Dates: start: 201501
  3. EYLEA [Suspect]
     Active Substance: AFLIBERCEPT
     Dosage: UNK, OS
     Dates: start: 20150807, end: 20150807
  4. BETADINE [Suspect]
     Active Substance: POVIDONE-IODINE
     Indication: PRODUCT USED FOR UNKNOWN INDICATION
  5. THERAPEUTIC MULTIVITAMIN           /01824401/ [Concomitant]
     Dosage: UNK
  6. CALCIUM [Concomitant]
     Active Substance: CALCIUM
     Dosage: UNK
  7. SYNTHROID [Concomitant]
     Active Substance: LEVOTHYROXINE SODIUM
     Dosage: UNK

REACTIONS (2)
  - Ocular discomfort [Unknown]
  - Eye pain [Unknown]

NARRATIVE: CASE EVENT DATE: 201501
